FAERS Safety Report 22295004 (Version 1)
Quarter: 2023Q2

REPORT INFORMATION
  Report Type: Spontaneous
  Country: US (occurrence: None)
  Receive Date: 20230505
  Receipt Date: 20230505
  Transmission Date: 20230722
  Serious: Yes (unspecified)
  Sender: FDA-Public Use
  Company Number: None

PATIENT
  Age: 38 Year
  Sex: Female
  Weight: 81 kg

DRUGS (3)
  1. CHANTIX [Suspect]
     Active Substance: VARENICLINE TARTRATE
     Indication: Smoking cessation therapy
     Route: 048
     Dates: start: 20230426, end: 20230502
  2. TRAMADOL [Concomitant]
     Active Substance: TRAMADOL
  3. FLONASE [Concomitant]
     Active Substance: FLUTICASONE PROPIONATE

REACTIONS (5)
  - Brain fog [None]
  - Crying [None]
  - Depressed mood [None]
  - Suicidal ideation [None]
  - Disturbance in attention [None]

NARRATIVE: CASE EVENT DATE: 20230502
